FAERS Safety Report 24177186 (Version 1)
Quarter: 2024Q3

REPORT INFORMATION
  Report Type: Report from Study
  Country: CA (occurrence: CA)
  Receive Date: 20240806
  Receipt Date: 20240806
  Transmission Date: 20241017
  Serious: Yes (Other)
  Sender: BIOCON
  Company Number: CA-BIOCON BIOLOGICS LIMITED-BBL2024005626

PATIENT

DRUGS (1)
  1. HULIO [Suspect]
     Active Substance: ADALIMUMAB-FKJP
     Indication: Colitis ulcerative
     Dosage: 40 MILLIGRAM, BID
     Route: 058

REACTIONS (8)
  - Mental impairment [Unknown]
  - Crying [Unknown]
  - Ear pain [Unknown]
  - Weight increased [Unknown]
  - Eye infection [Unknown]
  - Adverse drug reaction [Unknown]
  - Headache [Unknown]
  - Product prescribing error [Unknown]
